FAERS Safety Report 7686713-7 (Version None)
Quarter: 2011Q3

REPORT INFORMATION
  Report Type: 
  Country: None (occurrence: None)
  Receive Date: 20110811
  Receipt Date: 20110727
  Transmission Date: 20111222
  Serious: No
  Sender: FDA-Public Use
  Company Number: EU-2011-10106

PATIENT
  Age: 64 Year
  Sex: Male

DRUGS (2)
  1. SAMSCA [Suspect]
     Indication: HYPONATRAEMIA
     Dosage: 15, 7.5  MG MILLIGRAM(S), QD, ORAL
     Route: 048
     Dates: start: 20110519, end: 20110521
  2. SAMSCA [Suspect]
     Indication: HYPONATRAEMIA
     Dosage: 15, 7.5  MG MILLIGRAM(S), QD, ORAL
     Route: 048
     Dates: start: 20110522, end: 20110606

REACTIONS (4)
  - WRONG TECHNIQUE IN DRUG USAGE PROCESS [None]
  - CARDIAC FAILURE [None]
  - HEPATIC CIRRHOSIS [None]
  - RENAL FAILURE [None]
